FAERS Safety Report 8994948 (Version 1)
Quarter: 2012Q4

REPORT INFORMATION
  Report Type: Spontaneous
  Country: US (occurrence: None)
  Receive Date: 20121228
  Receipt Date: 20121228
  Transmission Date: 20130627
  Serious: Yes (Other)
  Sender: FDA-Public Use
  Company Number: None

PATIENT
  Sex: Male

DRUGS (4)
  1. ZYTIGA [Suspect]
     Indication: PROSTATE CANCER
     Dosage: 1000 mg Once daily po
     Route: 048
     Dates: start: 20120613, end: 20121227
  2. PREDNISONE [Suspect]
     Dosage: 5 mg BID po
     Route: 048
     Dates: start: 20120613, end: 20121227
  3. FOSAMAX [Concomitant]
  4. FLOMAX [Concomitant]

REACTIONS (2)
  - Heart rate increased [None]
  - Loss of consciousness [None]
